FAERS Safety Report 6163546-4 (Version None)
Quarter: 2009Q2

REPORT INFORMATION
  Report Type: 
  Country: None (occurrence: None)
  Receive Date: 20090420
  Receipt Date: 20090420
  Transmission Date: 20091009
  Serious: No
  Sender: FDA-Public Use
  Company Number: None

PATIENT
  Age: 56 Year
  Sex: Female
  Weight: 68.0396 kg

DRUGS (1)
  1. ZICAM [Suspect]
     Indication: NASOPHARYNGITIS
     Dosage: AS RECOMMENDED OCCASIONALLY NASAL
     Route: 045
     Dates: start: 20080101, end: 20090301

REACTIONS (2)
  - HYPOGEUSIA [None]
  - HYPOSMIA [None]
